FAERS Safety Report 21145722 (Version 2)
Quarter: 2022Q3

REPORT INFORMATION
  Report Type: Spontaneous
  Country: DE (occurrence: DE)
  Receive Date: 20220729
  Receipt Date: 20220824
  Transmission Date: 20221027
  Serious: Yes (Hospitalization, Other)
  Sender: FDA-Public Use
  Company Number: None

PATIENT
  Age: 28 Year
  Sex: Female
  Weight: 100 kg

DRUGS (4)
  1. GONAL-F [Suspect]
     Active Substance: FOLLITROPIN
     Indication: Assisted reproductive technology
     Dosage: 04 - 14 CYCLE DAY
     Route: 065
  2. GONAL-F [Suspect]
     Active Substance: FOLLITROPIN
     Dosage: 3RD CYCLE DAY
     Route: 065
  3. ORGALUTRAN [Suspect]
     Active Substance: GANIRELIX ACETATE
     Indication: Assisted reproductive technology
     Dosage: 07TH - 11TH CYCLE DAY AND 13TH CYCLE DAY
     Route: 065
  4. TRIPTORELIN ACETATE [Suspect]
     Active Substance: TRIPTORELIN ACETATE
     Indication: Assisted reproductive technology
     Dosage: 15 CYCLE DAY
     Route: 065

REACTIONS (2)
  - Ovarian hyperstimulation syndrome [Recovered/Resolved]
  - Ovarian haemorrhage [Recovered/Resolved]

NARRATIVE: CASE EVENT DATE: 20220701
